FAERS Safety Report 9575289 (Version 2)
Quarter: 2013Q4

REPORT INFORMATION
  Report Type: Report from Study
  Country: US (occurrence: US)
  Receive Date: 20131001
  Receipt Date: 20131001
  Transmission Date: 20140711
  Serious: Yes (Hospitalization, Other)
  Sender: FDA-Public Use
  Company Number: US-ACTELION-A-US2013-87143

PATIENT
  Age: 81 Year
  Sex: Female

DRUGS (1)
  1. TRACLEER [Suspect]
     Indication: COR PULMONALE CHRONIC
     Dosage: 62.5 MG, BID
     Route: 048
     Dates: start: 201307

REACTIONS (5)
  - Atrial fibrillation [Recovering/Resolving]
  - Liver function test abnormal [Unknown]
  - Alanine aminotransferase increased [Unknown]
  - Aspartate aminotransferase increased [Unknown]
  - Abdominal pain [Unknown]
